FAERS Safety Report 20871857 (Version 1)
Quarter: 2022Q2

REPORT INFORMATION
  Report Type: Spontaneous
  Country: GB (occurrence: GB)
  Receive Date: 20220525
  Receipt Date: 20220525
  Transmission Date: 20220721
  Serious: Yes (Other)
  Sender: FDA-Public Use
  Company Number: GB-MHRA-MED-202205231049292150-6WDMZ

PATIENT

DRUGS (1)
  1. SERETIDE [Suspect]
     Active Substance: FLUTICASONE PROPIONATE\SALMETEROL XINAFOATE
     Indication: Asthma
     Dosage: UNK, (125 X 2 PER DAY; ;)
     Route: 065

REACTIONS (1)
  - Oral blood blister [Not Recovered/Not Resolved]

NARRATIVE: CASE EVENT DATE: 20160105
